FAERS Safety Report 12393809 (Version 1)
Quarter: 2016Q2

REPORT INFORMATION
  Report Type: Spontaneous
  Country: US (occurrence: US)
  Receive Date: 20160523
  Receipt Date: 20160523
  Transmission Date: 20160815
  Serious: No
  Sender: FDA-Public Use
  Company Number: US-PFIZER INC-2016236744

PATIENT
  Age: 60 Year
  Sex: Female

DRUGS (1)
  1. GABAPENTIN. [Suspect]
     Active Substance: GABAPENTIN
     Indication: PAIN
     Dosage: 300MG, TWICE A DAY. SOMETIMES TAKES IT THREE TIMES A DAY
     Route: 048
     Dates: start: 2015

REACTIONS (1)
  - Drug ineffective for unapproved indication [Unknown]
